FAERS Safety Report 6064401-0 (Version None)
Quarter: 2009Q1

REPORT INFORMATION
  Report Type: 
  Country: None (occurrence: None)
  Receive Date: 20090204
  Receipt Date: 20090121
  Transmission Date: 20090719
  Serious: No
  Sender: FDA-Public Use
  Company Number: US-ASTRAZENECA-2009UW01957

PATIENT
  Age: 25089 Day
  Sex: Male
  Weight: 89.4 kg

DRUGS (8)
  1. NEXIUM [Suspect]
     Indication: GASTROOESOPHAGEAL REFLUX DISEASE
     Dosage: UNKNOWN
     Route: 048
     Dates: start: 20090115, end: 20090119
  2. FLOMAX [Concomitant]
  3. GEMFIBROZIL [Concomitant]
     Indication: BLOOD CHOLESTEROL
  4. LOTREL [Concomitant]
  5. ASPIRIN [Concomitant]
  6. GLUCOSAMINE/CONDROITIN [Concomitant]
  7. MULTI-VITAMINS [Concomitant]
  8. FIBER [Concomitant]

REACTIONS (2)
  - CONFUSIONAL STATE [None]
  - MEMORY IMPAIRMENT [None]
